FAERS Safety Report 11894546 (Version 1)
Quarter: 2016Q1

REPORT INFORMATION
  Report Type: Spontaneous
  Country: None (occurrence: None)
  Receive Date: 20160106
  Receipt Date: 20160106
  Transmission Date: 20160526
  Serious: Yes (Disabling)
  Sender: FDA-Public Use
  Company Number: None

PATIENT
  Age: 60 Year
  Sex: Female
  Weight: 86.64 kg

DRUGS (11)
  1. ATORVASTATIN CALCIUM. [Concomitant]
     Active Substance: ATORVASTATIN CALCIUM
  2. VITAMIN B12 [Concomitant]
     Active Substance: CYANOCOBALAMIN
  3. TRAVANTANZ [Concomitant]
  4. PICATO [Suspect]
     Active Substance: INGENOL MEBUTATE
     Indication: SKIN DISORDER
     Dosage: 0.015%?(3) UNIRA SOAW RUVWA ?NET WT 047 G IN EACH TUBE ?(1) TIME AT BEDTIME?ON THE SKIN
     Route: 061
     Dates: start: 20151104
  5. CITALOPRAM HYDROBROMIDE. [Concomitant]
     Active Substance: CITALOPRAM HYDROBROMIDE
  6. OMEPRAZOLE. [Concomitant]
     Active Substance: OMEPRAZOLE
  7. TIMOLOL MATEATE [Concomitant]
  8. METOPROLOL SUCCINATE ER [Concomitant]
     Active Substance: METOPROLOL SUCCINATE
  9. DIFLUNISAL. [Concomitant]
     Active Substance: DIFLUNISAL
  10. P32000 [Concomitant]
  11. ASPRIN [Concomitant]
     Active Substance: ASPIRIN

REACTIONS (4)
  - Swelling face [None]
  - Erythema [None]
  - Blister [None]
  - Facial pain [None]

NARRATIVE: CASE EVENT DATE: 20151105
